FAERS Safety Report 18100582 (Version 4)
Quarter: 2020Q3

REPORT INFORMATION
  Report Type: Report from Study
  Country: CO (occurrence: CO)
  Receive Date: 20200731
  Receipt Date: 20200831
  Transmission Date: 20201103
  Serious: Yes (Other)
  Sender: FDA-Public Use
  Company Number: NVSC2020CO213757

PATIENT
  Sex: Male
  Weight: 67 kg

DRUGS (5)
  1. TAFINLAR [Interacting]
     Active Substance: DABRAFENIB MESYLATE
     Indication: METASTATIC MALIGNANT MELANOMA
     Dosage: 150 MG, Q12H
     Route: 048
     Dates: start: 20200604
  2. MEKINIST [Suspect]
     Active Substance: TRAMETINIB DIMETHYL SULFOXIDE
     Indication: BRAF GENE MUTATION
     Dosage: 2 MG, QD
     Route: 048
     Dates: start: 20200526
  3. MEKINIST [Interacting]
     Active Substance: TRAMETINIB DIMETHYL SULFOXIDE
     Indication: METASTATIC MALIGNANT MELANOMA
     Dosage: 2 MG, QD
     Route: 048
     Dates: start: 20200604
  4. TAFINLAR [Interacting]
     Active Substance: DABRAFENIB MESYLATE
     Indication: BRAF GENE MUTATION
     Dosage: 150 MG, Q12H (75 MG CAPSULE)
     Route: 048
     Dates: start: 20200526
  5. LEVOTHYROXINE. [Concomitant]
     Active Substance: LEVOTHYROXINE
     Indication: HYPERTHYROIDISM
     Dosage: UNK, Q8H
     Route: 048

REACTIONS (7)
  - Fatigue [Unknown]
  - Back pain [Unknown]
  - Dizziness [Recovered/Resolved]
  - Bone pain [Unknown]
  - Myalgia [Unknown]
  - Tumour pain [Unknown]
  - Neoplasm malignant [Unknown]
